FAERS Safety Report 7391249-7 (Version None)
Quarter: 2011Q2

REPORT INFORMATION
  Report Type: 
  Country: None (occurrence: None)
  Receive Date: 20110404
  Receipt Date: 20110324
  Transmission Date: 20111010
  Serious: Yes (Hospitalization, Other)
  Sender: FDA-Public Use
  Company Number: US-US-EMD SERONO, INC.-7003178

PATIENT
  Sex: Female

DRUGS (2)
  1. AMPYRA [Concomitant]
     Indication: GAIT DISTURBANCE
  2. REBIF [Suspect]
     Indication: MULTIPLE SCLEROSIS
     Route: 058
     Dates: start: 20100111

REACTIONS (2)
  - PNEUMONIA [None]
  - CARDIAC FAILURE CONGESTIVE [None]
